FAERS Safety Report 4362671-8 (Version None)
Quarter: 2004Q2

REPORT INFORMATION
  Report Type: 
  Country: None (occurrence: None)
  Receive Date: 20040517
  Receipt Date: 20040325
  Transmission Date: 20050107
  Serious: No
  Sender: FDA-Public Use
  Company Number: S04-USA-01997-01

PATIENT
  Age: 75 Year
  Sex: Male

DRUGS (4)
  1. NAMENDA [Suspect]
     Indication: DEMENTIA ALZHEIMER'S TYPE
  2. EXELON [Concomitant]
  3. BLOOD PRESSURE MEDICATION [Concomitant]
  4. STROKE PREVENTION MEDICATION [Concomitant]

REACTIONS (2)
  - CONFUSIONAL STATE [None]
  - LETHARGY [None]
